FAERS Safety Report 8775009 (Version 2)
Quarter: 2013Q1

REPORT INFORMATION
  Report Type: Spontaneous
  Country: US (occurrence: US)
  Receive Date: 20120910
  Receipt Date: 20130122
  Transmission Date: 20140127
  Serious: Yes (Hospitalization, Other)
  Sender: FDA-Public Use
  Company Number: US-BAYER-2012-091663

PATIENT
  Age: 32 Year
  Sex: Female

DRUGS (5)
  1. YAZ [Suspect]
  2. YASMIN [Suspect]
     Indication: CONTRACEPTION
     Dosage: UNK UNK, QD
     Route: 048
  3. PARACETAMOL W/TRAMADOL HYDROCHLORIDE [Concomitant]
     Dosage: 37.5-325 MG,
     Dates: start: 20080415
  4. TRAMADOL [Concomitant]
     Dosage: UNK UNK, PRN
     Dates: start: 20080417
  5. OSCAL D [Concomitant]
     Dosage: DAILY
     Dates: start: 20080417

REACTIONS (2)
  - Pulmonary embolism [None]
  - Cholelithiasis [None]
